FAERS Safety Report 6381451-5 (Version None)
Quarter: 2009Q3

REPORT INFORMATION
  Report Type: 
  Country: None (occurrence: None)
  Receive Date: 20090924
  Receipt Date: 20090915
  Transmission Date: 20100115
  Serious: Yes (Other)
  Sender: FDA-Public Use
  Company Number: GB-EBEWE-1375FLUORO09

PATIENT
  Age: 64 Year
  Sex: Male
  Weight: 61 kg

DRUGS (1)
  1. FLUOROURACIL INJ [Suspect]
     Dosage: 178.8MG, INFUSED 8 HOURS
     Dates: start: 20090820

REACTIONS (3)
  - INFUSION SITE EXTRAVASATION [None]
  - INFUSION SITE PAIN [None]
  - INFUSION SITE SWELLING [None]
